FAERS Safety Report 12000837 (Version 2)
Quarter: 2016Q1

REPORT INFORMATION
  Report Type: Report from Study
  Country: US (occurrence: US)
  Receive Date: 20160204
  Receipt Date: 20160304
  Transmission Date: 20160526
  Serious: Yes (Other)
  Sender: FDA-Public Use
  Company Number: US-AMGEN-USASL2016012031

PATIENT
  Age: 59 Year
  Sex: Female

DRUGS (2)
  1. ENBREL [Suspect]
     Active Substance: ETANERCEPT
     Indication: RHEUMATOID ARTHRITIS
     Dosage: 50 MG, QWK
     Route: 065
     Dates: end: 20160101
  2. METHOTREXATE (METHOTREXATE SODIUM) [Concomitant]
     Active Substance: METHOTREXATE SODIUM
     Dosage: UNK

REACTIONS (14)
  - Depression [Unknown]
  - Foot operation [Unknown]
  - Ankle arthroplasty [Unknown]
  - Rheumatoid arthritis [Unknown]
  - Influenza like illness [Unknown]
  - Onychomycosis [Unknown]
  - Asthenia [Unknown]
  - Fatigue [Unknown]
  - Bunion operation [Unknown]
  - Blood glucose increased [Unknown]
  - Feeling abnormal [Unknown]
  - Staphylococcal infection [Unknown]
  - Nail discolouration [Unknown]
  - Allergic sinusitis [Unknown]

NARRATIVE: CASE EVENT DATE: 201512
